FAERS Safety Report 9457952 (Version 3)
Quarter: 2013Q4

REPORT INFORMATION
  Report Type: Spontaneous
  Country: US (occurrence: None)
  Receive Date: 20130809
  Receipt Date: 20131016
  Transmission Date: 20140711
  Serious: Yes (Death, Hospitalization, Disabling, Other)
  Sender: FDA-Public Use
  Company Number: DSU-2013-04216

PATIENT
  Age: 74 Year
  Sex: Female
  Weight: 115.21 kg

DRUGS (18)
  1. BENICAR [Suspect]
     Indication: HYPERTENSION
     Route: 048
  2. XALKORI [Suspect]
     Indication: LUNG ADENOCARCINOMA METASTATIC
     Dosage: 500 MG (250 MG, 2 IN 1 D)
     Route: 048
     Dates: start: 20130328
  3. FOLVITE (FOLIC ACID) [Concomitant]
  4. ULTRAM (TRAMADOL HYDROCHLORIDE) [Concomitant]
  5. KLONOPIN (CLONAZEPAM) [Concomitant]
  6. AMARYL (GLIMEPIRIDE) [Concomitant]
  7. CHOLESTYRAMINE (COLESTYRAMINE) [Concomitant]
  8. SYNTHROID (LEVOTHYROXINE SODIUM) [Concomitant]
  9. LASIX (FUROSEMIDE) [Concomitant]
  10. LANTUS (INSULIN GLARGINE) INJECTION) (INSULIN GLARGINE) [Concomitant]
  11. NORVASC (AMLODIPINE BESILATE) [Concomitant]
  12. MIRALAX [Concomitant]
  13. OXY-IR (OXYCODONE) [Concomitant]
  14. TYLENOL (PARACETAMOL) [Concomitant]
  15. CITRACAL +D(ERGOCALCIFEROL, CALCIUM CITRATE) [Concomitant]
  16. COLACE [Concomitant]
  17. TOPROL (METOPROLOL SUCCINATE) [Concomitant]
  18. ASPIRIN (ACETYLSALICYLIC ACID) [Concomitant]

REACTIONS (25)
  - Malignant pleural effusion [None]
  - Non-small cell lung cancer metastatic [None]
  - Diabetes mellitus [None]
  - Neuropathy peripheral [None]
  - Obesity [None]
  - Fibromyalgia [None]
  - Sleep apnoea syndrome [None]
  - Osteoarthritis [None]
  - Spinal column stenosis [None]
  - Hypothyroidism [None]
  - Blood cholesterol increased [None]
  - Oedema peripheral [None]
  - Renal failure chronic [None]
  - Chills [None]
  - Renal failure acute [None]
  - Nephrogenic anaemia [None]
  - Pulmonary hypertension [None]
  - Tremor [None]
  - Somnolence [None]
  - Blood alkaline phosphatase increased [None]
  - Malignant neoplasm progression [None]
  - Ovarian cyst [None]
  - Anaemia [None]
  - Nausea [None]
  - Restrictive pulmonary disease [None]
